FAERS Safety Report 7766631-6 (Version None)
Quarter: 2011Q3

REPORT INFORMATION
  Report Type: 
  Country: None (occurrence: None)
  Receive Date: 20110919
  Receipt Date: 20110907
  Transmission Date: 20111222
  Serious: Yes (Hospitalization)
  Sender: FDA-Public Use
  Company Number: JPI-P-016975

PATIENT
  Age: 64 Year
  Sex: Female
  Weight: 77.1115 kg

DRUGS (2)
  1. XYREM [Suspect]
     Indication: RESTLESS LEGS SYNDROME
     Dosage: ORAL 4.5 GM (2.25 GM, 2 IN 1 D), ORAL
     Route: 048
     Dates: start: 20060101
  2. MULTIPLE UNSPECIFIED MEDICATION [Concomitant]

REACTIONS (7)
  - BRADYCARDIA [None]
  - DEVICE MALFUNCTION [None]
  - NAUSEA [None]
  - BUNDLE BRANCH BLOCK [None]
  - PRODUCT PHYSICAL ISSUE [None]
  - ABDOMINAL DISCOMFORT [None]
  - PRODUCT CONTAINER ISSUE [None]
